FAERS Safety Report 8309714-4 (Version None)
Quarter: 2012Q2

REPORT INFORMATION
  Report Type: 
  Country: None (occurrence: None)
  Receive Date: 20120423
  Receipt Date: 20120411
  Transmission Date: 20120825
  Serious: Yes (Hospitalization)
  Sender: FDA-Public Use
  Company Number: AUR-APL-2012-01802

PATIENT
  Age: 75 Year
  Sex: Female

DRUGS (14)
  1. FERROUS SULFATE TAB [Concomitant]
  2. LACTULOSE [Concomitant]
  3. NAPROXEN [Suspect]
     Indication: PRODUCT USED FOR UNKNOWN INDICATION
     Dosage: 500 MG (250 MG,2 IN 1 D),ORAL
     Route: 048
     Dates: end: 20120307
  4. ADCAL-D3 (LEKOVIT CA) [Concomitant]
  5. ACETAMINOPHEN W/ CODEINE [Concomitant]
  6. MORPHINE SULFATE [Concomitant]
  7. DEXAMETHASONE [Concomitant]
  8. EXEMESTANE [Concomitant]
  9. OMEPRAZOLE [Concomitant]
  10. ORAMORPH SR [Concomitant]
  11. DOMPERIDONE (DOMPERIDONE) [Concomitant]
  12. GAVISCON (GAVISCON /00237601/) [Concomitant]
  13. LAXIDO (MACROGOL 3350) [Concomitant]
  14. TRIMETHOPRIM [Concomitant]

REACTIONS (2)
  - GASTROINTESTINAL HAEMORRHAGE [None]
  - HAEMOGLOBIN DECREASED [None]
